FAERS Safety Report 9221934 (Version 1)
Quarter: 2013Q2

REPORT INFORMATION
  Report Type: Spontaneous
  Country: US (occurrence: None)
  Receive Date: 20130410
  Receipt Date: 20130410
  Transmission Date: 20140414
  Serious: Yes (Hospitalization)
  Sender: FDA-Public Use
  Company Number: None

PATIENT
  Age: 87 Year
  Sex: Female
  Weight: 47 kg

DRUGS (5)
  1. COUMADIN [Suspect]
     Indication: ATRIAL FIBRILLATION
     Dosage: 2.5MG DAILY PO?CHRONIC
     Route: 048
  2. AZITHROMYCIN [Suspect]
     Indication: BRONCHITIS
     Dosage: ?    ?    PO?RECENT
     Route: 048
  3. PANTOPRAZOLE [Concomitant]
  4. LUMIGAN [Concomitant]
  5. DORZOLAMIDE [Concomitant]

REACTIONS (3)
  - Drug interaction [None]
  - Abdominal wall haematoma [None]
  - International normalised ratio increased [None]
